FAERS Safety Report 19011450 (Version 1)
Quarter: 2021Q1

REPORT INFORMATION
  Report Type: Spontaneous
  Country: US (occurrence: US)
  Receive Date: 20210315
  Receipt Date: 20210315
  Transmission Date: 20210420
  Serious: Yes (Hospitalization, Other)
  Sender: FDA-Public Use
  Company Number: None

PATIENT
  Age: 18 Year
  Sex: Female

DRUGS (7)
  1. DICYCLOMINE [Concomitant]
     Active Substance: DICYCLOMINE HYDROCHLORIDE
     Dates: start: 20210211
  2. MESALAMINE 1000MG SUPPOSITORY [Concomitant]
     Dates: start: 20210211
  3. METRONIDAZOLE 500MG [Concomitant]
     Active Substance: METRONIDAZOLE
     Dates: start: 20210303
  4. OMEPRAZOLE 20MG [Concomitant]
     Active Substance: OMEPRAZOLE
     Dates: start: 20210303
  5. HUMIRA [Suspect]
     Active Substance: ADALIMUMAB
     Indication: CROHN^S DISEASE
     Dosage: ?          OTHER FREQUENCY:EVERY 10 DAYS;?
     Route: 058
  6. BUDESONIDE 3MG [Concomitant]
     Active Substance: BUDESONIDE
     Dates: start: 20200604
  7. PREDNISONE 20MG [Concomitant]
     Active Substance: PREDNISONE
     Dates: start: 20210313

REACTIONS (3)
  - Abdominal pain [None]
  - Diarrhoea [None]
  - Haematochezia [None]

NARRATIVE: CASE EVENT DATE: 20210315
